FAERS Safety Report 9111469 (Version 1)
Quarter: 2013Q1

REPORT INFORMATION
  Report Type: Spontaneous
  Country: US (occurrence: US)
  Receive Date: 20130219
  Receipt Date: 20130219
  Transmission Date: 20140127
  Serious: No
  Sender: FDA-Public Use
  Company Number: US-BRISTOL-MYERS SQUIBB COMPANY-16674491

PATIENT
  Age: 55 Year
  Sex: Female

DRUGS (8)
  1. ABATACEPT SUBQ INJECTION 125MG/ML [Suspect]
  2. ALPRAZOLAM [Concomitant]
  3. PREDNISONE [Concomitant]
  4. FISH OIL [Concomitant]
  5. FIORICET [Concomitant]
  6. DILAUDID [Concomitant]
  7. SYNTHROID [Concomitant]
  8. ATIVAN [Concomitant]

REACTIONS (3)
  - Rash generalised [Unknown]
  - Nausea [Unknown]
  - Dizziness [Unknown]
